FAERS Safety Report 4492890-1 (Version None)
Quarter: 2004Q4

REPORT INFORMATION
  Report Type: 
  Country: None (occurrence: None)
  Receive Date: 20041102
  Receipt Date: 20041021
  Transmission Date: 20050328
  Serious: Yes (Other)
  Sender: FDA-Public Use
  Company Number: WAES 0410USA02798

PATIENT
  Age: 68 Year
  Sex: Female

DRUGS (3)
  1. COZAAR [Suspect]
     Indication: HYPERTENSION
     Dosage: 25 MG/DAILY PO
     Route: 048
     Dates: start: 20001130
  2. ONEALFA [Concomitant]
  3. CALCIUM ASPARTATE [Concomitant]

REACTIONS (3)
  - DEAFNESS UNILATERAL [None]
  - MUSCULOSKELETAL STIFFNESS [None]
  - TINNITUS [None]
